FAERS Safety Report 21578321 (Version 3)
Quarter: 2022Q4

REPORT INFORMATION
  Report Type: Report from Study
  Country: US (occurrence: US)
  Receive Date: 20221110
  Receipt Date: 20221128
  Transmission Date: 20230113
  Serious: No
  Sender: FDA-Public Use
  Company Number: US-002147023-NVSC2022US253752

PATIENT
  Sex: Male

DRUGS (1)
  1. ENTRESTO [Suspect]
     Active Substance: SACUBITRIL\VALSARTAN
     Indication: Product used for unknown indication
     Dosage: 1 DOSAGE FORM, BID (24/26MG)
     Route: 065

REACTIONS (7)
  - Urinary tract infection [Unknown]
  - Malaise [Unknown]
  - Balance disorder [Unknown]
  - Ejection fraction decreased [Unknown]
  - Fatigue [Unknown]
  - Dizziness [Unknown]
  - Hypotension [Unknown]
